FAERS Safety Report 10399064 (Version 1)
Quarter: 2014Q1

REPORT INFORMATION
  Report Type: Spontaneous
  Country: US (occurrence: None)
  Receive Date: 20130815
  Receipt Date: 20130815
  Transmission Date: 20141002
  Serious: Yes (Hospitalization)
  Sender: FDA-Public Use
  Company Number: ADR-2012-02150

PATIENT
  Sex: Female

DRUGS (2)
  1. BACLOFEN INTRATHECAL [Suspect]
     Indication: MUSCLE SPASTICITY
  2. NEURONTIN [Concomitant]

REACTIONS (6)
  - Feeling of body temperature change [None]
  - Nausea [None]
  - Abdominal pain upper [None]
  - Hyperhidrosis [None]
  - Muscle twitching [None]
  - Overdose [None]
